FAERS Safety Report 15785473 (Version 2)
Quarter: 2019Q1

REPORT INFORMATION
  Report Type: Spontaneous
  Country: US (occurrence: US)
  Receive Date: 20190103
  Receipt Date: 20190119
  Transmission Date: 20190417
  Serious: Yes (Life-Threatening, Hospitalization)
  Sender: FDA-Public Use
  Company Number: US-TEVA-2018-US-993425

PATIENT
  Age: 42 Year
  Sex: Male

DRUGS (3)
  1. TIANEPTINE SODIUM [Interacting]
     Active Substance: TIANEPTINE SODIUM
     Indication: BACK PAIN
     Dosage: ONE SCOOP OF THE POWDER WHEN NEEDED
     Route: 065
  2. ALPRAZOLAM. [Suspect]
     Active Substance: ALPRAZOLAM
     Indication: PRODUCT USED FOR UNKNOWN INDICATION
     Route: 065
  3. TIANEPTINE SODIUM [Interacting]
     Active Substance: TIANEPTINE SODIUM
     Indication: BACK PAIN
     Dosage: TAKEN INORDINATELY LARGE AMOUNT (OVERDOSE)
     Route: 065

REACTIONS (9)
  - Pneumonia aspiration [Recovered/Resolved]
  - Unresponsive to stimuli [Recovered/Resolved]
  - Respiratory depression [Recovered/Resolved]
  - Intentional product misuse [Unknown]
  - Drug abuse [Unknown]
  - Overdose [Unknown]
  - Drug dependence [Unknown]
  - Drug interaction [Unknown]
  - Euphoric mood [Recovered/Resolved]
